FAERS Safety Report 10210840 (Version 1)
Quarter: 2014Q2

REPORT INFORMATION
  Report Type: Report from Study
  Country: ES (occurrence: ES)
  Receive Date: 20140602
  Receipt Date: 20140602
  Transmission Date: 20141212
  Serious: Yes (Hospitalization)
  Sender: FDA-Public Use
  Company Number: ES-GLAXOSMITHKLINE-B0998537A

PATIENT
  Age: 48 Year
  Sex: Male
  Weight: 164 kg

DRUGS (7)
  1. OFATUMUMAB [Suspect]
     Indication: CHRONIC LYMPHOCYTIC LEUKAEMIA
  2. RAPAMYCIN [Concomitant]
  3. TACROLIMUS [Concomitant]
     Dosage: 4MG PER DAY
     Route: 048
  4. BECLOMETASONE [Concomitant]
     Dosage: 16ML PER DAY
     Route: 048
  5. BUDESONIDE [Concomitant]
     Dosage: 9MG PER DAY
     Route: 048
  6. OMEPRAZOLE [Concomitant]
     Dosage: 20MG PER DAY
     Route: 048
  7. LORAZEPAM [Concomitant]
     Dosage: 1MG PER DAY
     Route: 048

REACTIONS (1)
  - Acute graft versus host disease [Recovered/Resolved]
